FAERS Safety Report 24165727 (Version 1)
Quarter: 2024Q3

REPORT INFORMATION
  Report Type: Report from Study
  Country: US (occurrence: US)
  Receive Date: 20240802
  Receipt Date: 20240802
  Transmission Date: 20241017
  Serious: No
  Sender: ACCORD
  Company Number: US-Accord-380866

PATIENT
  Age: 69 Year
  Sex: Male

DRUGS (22)
  1. DOCETAXEL [Suspect]
     Active Substance: DOCETAXEL\DOCETAXEL ANHYDROUS
     Indication: Product used for unknown indication
  2. RELUGOLIX [Suspect]
     Active Substance: RELUGOLIX
     Indication: Prostate cancer
     Dosage: STRENGTH: 120 MILLIGRAM, QD?360 MILLIGRAM, ONE TIME DOSE
     Route: 048
     Dates: start: 20230827, end: 20230827
  3. ABIRATERONE [Concomitant]
     Active Substance: ABIRATERONE
  4. FLOMAX [Concomitant]
     Active Substance: TAMSULOSIN HYDROCHLORIDE
  5. GABAPENTIN [Concomitant]
     Active Substance: GABAPENTIN
  6. TYLENOL [Concomitant]
     Active Substance: ACETAMINOPHEN
  7. PREDNISONE [Concomitant]
     Active Substance: PREDNISONE
  8. NORCO [Concomitant]
     Active Substance: ACETAMINOPHEN\HYDROCODONE BITARTRATE
     Dosage: 10-325 MILLIGRAM
  9. ZOFRAN [Concomitant]
     Active Substance: ONDANSETRON HYDROCHLORIDE
  10. HYDROCHLOROTHIAZIDE\LOSARTAN POTASSIUM [Concomitant]
     Active Substance: HYDROCHLOROTHIAZIDE\LOSARTAN POTASSIUM
     Dosage: 100-12.5 MILLIGRAM
  11. VITAMINS [Concomitant]
     Active Substance: VITAMINS
  12. COLACE [Concomitant]
     Active Substance: DOCUSATE SODIUM
  13. CASODEX [Concomitant]
     Active Substance: BICALUTAMIDE
  14. ZYTIGA [Concomitant]
     Active Substance: ABIRATERONE ACETATE
  15. FAMOTIDINE [Concomitant]
     Active Substance: FAMOTIDINE
  16. POTASSIUM [Concomitant]
     Active Substance: POTASSIUM
  17. HYDROCODONE BITARTRATE AND ACETAMINOPHEN [Concomitant]
     Active Substance: ACETAMINOPHEN\HYDROCODONE BITARTRATE
  18. MACROBID [Concomitant]
     Active Substance: NITROFURANTOIN\NITROFURANTOIN MONOHYDRATE
  19. BEC [Concomitant]
  20. ZINC [Concomitant]
     Active Substance: ZINC
  21. CIPROFLOXACIN [Concomitant]
     Active Substance: CIPROFLOXACIN
  22. RELUGOLIX [Suspect]
     Active Substance: RELUGOLIX
     Indication: Prostate cancer
     Dosage: STRENGTH: 120 MILLIGRAM, QD
     Route: 048
     Dates: start: 20230828

REACTIONS (10)
  - Blood potassium decreased [Unknown]
  - Gastrooesophageal reflux disease [Unknown]
  - Back pain [Unknown]
  - Dysuria [Unknown]
  - Pollakiuria [Not Recovered/Not Resolved]
  - Fatigue [Not Recovered/Not Resolved]
  - Diarrhoea [Not Recovered/Not Resolved]
  - Joint swelling [Not Recovered/Not Resolved]
  - Neuropathy peripheral [Unknown]
  - Brain fog [Unknown]

NARRATIVE: CASE EVENT DATE: 20230827
